FAERS Safety Report 10518969 (Version 2)
Quarter: 2015Q2

REPORT INFORMATION
  Report Type: Spontaneous
  Country: DK (occurrence: DK)
  Receive Date: 20141015
  Receipt Date: 20150413
  Transmission Date: 20150821
  Serious: Yes (Other)
  Sender: FDA-Public Use
  Company Number: PHHY2014DK131346

PATIENT
  Age: 18 Year
  Sex: Female

DRUGS (2)
  1. LINDYNETTE [Concomitant]
     Active Substance: ETHINYL ESTRADIOL\GESTODENE
     Indication: CONTRACEPTION
     Dosage: UNK
     Route: 065
     Dates: start: 20090610
  2. CITALOPRAM [Suspect]
     Active Substance: CITALOPRAM HYDROBROMIDE
     Indication: DEPRESSION
     Dosage: 20 MG, QD
     Route: 048
     Dates: start: 20140513, end: 20140925

REACTIONS (33)
  - Memory impairment [Recovering/Resolving]
  - Migraine [Recovering/Resolving]
  - Cough [Recovering/Resolving]
  - Feeling of body temperature change [Recovering/Resolving]
  - Palpitations [Recovering/Resolving]
  - Disturbance in attention [Recovering/Resolving]
  - Tremor [Recovering/Resolving]
  - Visual impairment [Recovering/Resolving]
  - Influenza like illness [Recovering/Resolving]
  - Personality change [Recovering/Resolving]
  - Somnolence [Recovering/Resolving]
  - Dizziness [Recovering/Resolving]
  - Restlessness [Recovering/Resolving]
  - Increased appetite [Recovering/Resolving]
  - Myalgia [Recovering/Resolving]
  - Suicidal ideation [Recovered/Resolved]
  - Anxiety [Recovering/Resolving]
  - Aggression [Recovering/Resolving]
  - Constipation [Recovering/Resolving]
  - Sexual dysfunction [Recovering/Resolving]
  - Abdominal pain [Recovering/Resolving]
  - Pruritus [Recovering/Resolving]
  - Abnormal dreams [Recovering/Resolving]
  - Rash [Recovering/Resolving]
  - Photophobia [Recovering/Resolving]
  - Hyperacusis [Recovering/Resolving]
  - Indifference [Recovering/Resolving]
  - Nausea [Recovered/Resolved]
  - Hypersensitivity [Recovering/Resolving]
  - Tinnitus [Recovering/Resolving]
  - Hypotension [Recovering/Resolving]
  - Arthralgia [Recovering/Resolving]
  - Pyrexia [Recovering/Resolving]

NARRATIVE: CASE EVENT DATE: 20140513
